FAERS Safety Report 5444151-1 (Version None)
Quarter: 2007Q3

REPORT INFORMATION
  Report Type: 
  Country: None (occurrence: None)
  Receive Date: 20070904
  Receipt Date: 20070904
  Transmission Date: 20080115
  Serious: Yes (Death, Hospitalization)
  Sender: FDA-Public Use
  Company Number: None

PATIENT
  Age: 68 Year
  Sex: Male
  Weight: 110.2241 kg

DRUGS (2)
  1. FLUDARABINE 50MG LYOPHILIZED SDV INJ [Suspect]
     Indication: CHRONIC LYMPHOCYTIC LEUKAEMIA
     Dosage: 60MG QD X 3;Q28D IV
     Route: 042
     Dates: start: 20070521, end: 20070523
  2. FLUDARABINE 50MG LYOPHILIZED SDV INJ [Suspect]
     Indication: CHRONIC LYMPHOCYTIC LEUKAEMIA
     Dosage: 60MG QD X 3;Q28D IV
     Route: 042
     Dates: start: 20070618, end: 20070620

REACTIONS (9)
  - BLOOD CULTURE POSITIVE [None]
  - BONE MARROW FAILURE [None]
  - FUNGAL INFECTION [None]
  - GENERAL PHYSICAL HEALTH DETERIORATION [None]
  - HYPOACUSIS [None]
  - MENTAL STATUS CHANGES [None]
  - MYALGIA [None]
  - PANCYTOPENIA [None]
  - RESPIRATORY DISTRESS [None]
